FAERS Safety Report 9582328 (Version 1)
Quarter: 2013Q4

REPORT INFORMATION
  Report Type: Spontaneous
  Country: US (occurrence: US)
  Receive Date: 20131002
  Receipt Date: 20131002
  Transmission Date: 20140711
  Serious: No
  Sender: FDA-Public Use
  Company Number: US-AMGEN-USASP2013039831

PATIENT
  Age: 50 Year
  Sex: Female
  Weight: 92.06 kg

DRUGS (4)
  1. ENBREL [Suspect]
     Indication: PRODUCT USED FOR UNKNOWN INDICATION
     Dosage: 50 MG, 2 TIMES/WK FOR 3 MONTHS AND ONCE A WEEK THEREAFTER
     Route: 058
  2. ORACEA [Concomitant]
     Dosage: 40 MG, UNK
  3. TRIAMCINOLON                       /00031901/ [Concomitant]
     Dosage: UNK
  4. CLOBETASOL [Concomitant]
     Dosage: UNK, SOLUTION

REACTIONS (1)
  - Drug ineffective [Unknown]
